FAERS Safety Report 8574946-7 (Version None)
Quarter: 2012Q2

REPORT INFORMATION
  Report Type: 
  Country: None (occurrence: None)
  Receive Date: 20120423
  Receipt Date: 20091103
  Transmission Date: 20120825
  Serious: Yes (Hospitalization, Other)
  Sender: FDA-Public Use
  Company Number: PHEH2009US14967

PATIENT
  Age: 50 Year
  Sex: Female

DRUGS (2)
  1. EXJADE [Suspect]
     Indication: IRON OVERLOAD
     Dosage: 500 MG, BID, ORAL
     Route: 048
     Dates: end: 20091012
  2. EXJADE [Suspect]
     Indication: SICKLE CELL ANAEMIA
     Dosage: 500 MG, BID, ORAL
     Route: 048
     Dates: end: 20091012

REACTIONS (1)
  - SICKLE CELL ANAEMIA [None]
